FAERS Safety Report 5347708-1 (Version None)
Quarter: 2007Q2

REPORT INFORMATION
  Report Type: 
  Country: None (occurrence: None)
  Receive Date: 20070508
  Receipt Date: 20060912
  Transmission Date: 20071010
  Serious: Yes (Hospitalization)
  Sender: FDA-Public Use
  Company Number: 235947K06USA

PATIENT
  Age: 41 Year
  Sex: Female
  Weight: 80.7 kg

DRUGS (4)
  1. REBIF [Suspect]
     Indication: MULTIPLE SCLEROSIS
     Dosage: 44 MCG, 3 IN 1 WEEKS; SUBCUTANEOUS
     Route: 058
     Dates: start: 20041001
  2. TEGRETROL (CARBAMAZEPINE) [Concomitant]
  3. PROZAC [Concomitant]
  4. PROVIGIL [Concomitant]

REACTIONS (5)
  - DYSPHEMIA [None]
  - HEMIPARESIS [None]
  - INFLUENZA LIKE ILLNESS [None]
  - INSOMNIA [None]
  - MULTIPLE SCLEROSIS RELAPSE [None]
